FAERS Safety Report 19073832 (Version 2)
Quarter: 2021Q2

REPORT INFORMATION
  Report Type: Report from Study
  Country: US (occurrence: US)
  Receive Date: 20210330
  Receipt Date: 20210421
  Transmission Date: 20210717
  Serious: Yes (Hospitalization)
  Sender: FDA-Public Use
  Company Number: US-ALLERGAN-2106398US

PATIENT
  Sex: Female
  Weight: 62.3 kg

DRUGS (6)
  1. BLINDED LEVOMILNACIPRAN 10MG CAP [Suspect]
     Active Substance: LEVOMILNACIPRAN
     Indication: MAJOR DEPRESSION
     Dosage: UNK
     Dates: start: 20201126, end: 20210127
  2. BLINDED FLUOXETINE [Suspect]
     Active Substance: FLUOXETINE HYDROCHLORIDE
     Indication: MAJOR DEPRESSION
     Dosage: UNK
     Dates: start: 20201126, end: 20210127
  3. PLACEBO [Suspect]
     Active Substance: UNSPECIFIED INGREDIENT
     Indication: MAJOR DEPRESSION
     Dosage: UNK
     Dates: start: 20201126, end: 20210127
  4. BLINDED LEVOMILNACIPRAN 20MG CAP [Suspect]
     Active Substance: LEVOMILNACIPRAN
     Indication: MAJOR DEPRESSION
     Dosage: UNK
     Dates: start: 20201126, end: 20210127
  5. LEXAPRO [Concomitant]
     Active Substance: ESCITALOPRAM OXALATE
     Indication: DEPRESSION
     Dosage: 10 MG, QAM
     Route: 048
     Dates: start: 20210128
  6. BLINDED LEVOMILNACIPRAN 40MG CAP [Suspect]
     Active Substance: LEVOMILNACIPRAN
     Indication: MAJOR DEPRESSION
     Dosage: UNK
     Dates: start: 20201126, end: 20210127

REACTIONS (1)
  - Major depression [Recovered/Resolved]

NARRATIVE: CASE EVENT DATE: 20210204
